FAERS Safety Report 9278145 (Version 1)
Quarter: 2013Q2

REPORT INFORMATION
  Report Type: Spontaneous
  Country: PT (occurrence: PT)
  Receive Date: 20130508
  Receipt Date: 20130508
  Transmission Date: 20140414
  Serious: Yes (Hospitalization, Other)
  Sender: FDA-Public Use
  Company Number: PT-ASTELLAS-2013EU004033

PATIENT
  Age: 17 Year
  Sex: Female

DRUGS (2)
  1. TACROLIMUS SYSTEMIC [Suspect]
     Indication: PROPHYLAXIS AGAINST TRANSPLANT REJECTION
     Dosage: UNK
     Route: 065
  2. RAPAMUNE [Suspect]
     Indication: PROPHYLAXIS AGAINST TRANSPLANT REJECTION
     Dosage: 1 MG, UID/QD
     Route: 048

REACTIONS (6)
  - Off label use [Unknown]
  - Congestive cardiomyopathy [Unknown]
  - Confusional state [Recovering/Resolving]
  - Hyperammonaemia [Recovering/Resolving]
  - Blood urea increased [Recovering/Resolving]
  - Neurotoxicity [Recovering/Resolving]
